FAERS Safety Report 12424492 (Version 1)
Quarter: 2016Q2

REPORT INFORMATION
  Report Type: Spontaneous
  Country: US (occurrence: US)
  Receive Date: 20160601
  Receipt Date: 20160601
  Transmission Date: 20160815
  Serious: No
  Sender: FDA-Public Use
  Company Number: US-NOVEN PHARMACEUTICALS, INC.-US2016000083

PATIENT
  Age: 11 Year
  Sex: Male

DRUGS (3)
  1. DAYTRANA [Suspect]
     Active Substance: METHYLPHENIDATE
     Dosage: CUTTING 30 MG PATCHES INTO ONE THIRD, UNKNOWN
     Route: 062
     Dates: start: 201601
  2. ESPIRIDE [Concomitant]
     Indication: MOOD SWINGS
  3. DAYTRANA [Suspect]
     Active Substance: METHYLPHENIDATE
     Indication: ATTENTION DEFICIT/HYPERACTIVITY DISORDER
     Dosage: 20 MG, UNKNOWN
     Route: 062
     Dates: start: 2014, end: 201601

REACTIONS (5)
  - Drug dose omission [Recovered/Resolved]
  - Wrong technique in product usage process [Not Recovered/Not Resolved]
  - Disturbance in attention [Unknown]
  - Off label use [Not Recovered/Not Resolved]
  - Psychomotor hyperactivity [Unknown]

NARRATIVE: CASE EVENT DATE: 201601
